FAERS Safety Report 20136234 (Version 1)
Quarter: 2021Q4

REPORT INFORMATION
  Report Type: Spontaneous
  Country: US (occurrence: US)
  Receive Date: 20211201
  Receipt Date: 20211201
  Transmission Date: 20220304
  Serious: No
  Sender: FDA-Public Use
  Company Number: US-MLMSERVICE-20211104-3205910-1

PATIENT
  Age: 61 Year
  Sex: Male

DRUGS (1)
  1. COZAAR [Suspect]
     Active Substance: LOSARTAN POTASSIUM
     Indication: Hypertension
     Dosage: 100 MILLIGRAM, QD
     Route: 048

REACTIONS (1)
  - Therapeutic response unexpected [Unknown]
